FAERS Safety Report 21945359 (Version 7)
Quarter: 2024Q4

REPORT INFORMATION
  Report Type: Spontaneous
  Country: PR (occurrence: PR)
  Receive Date: 20230202
  Receipt Date: 20241206
  Transmission Date: 20250115
  Serious: No
  Sender: PFIZER
  Company Number: PR-PFIZER INC-PV202300018309

PATIENT
  Age: 69 Year
  Sex: Female
  Weight: 58.05 kg

DRUGS (1)
  1. XELJANZ XR [Suspect]
     Active Substance: TOFACITINIB CITRATE
     Dosage: 11 MG, DAILY
     Route: 048

REACTIONS (7)
  - Drug hypersensitivity [Unknown]
  - Mobility decreased [Unknown]
  - Pain [Unknown]
  - Fatigue [Unknown]
  - Frustration tolerance decreased [Unknown]
  - Nausea [Unknown]
  - Anxiety [Unknown]
